FAERS Safety Report 13881517 (Version 1)
Quarter: 2017Q3

REPORT INFORMATION
  Report Type: Spontaneous
  Country: US (occurrence: US)
  Receive Date: 20170818
  Receipt Date: 20170818
  Transmission Date: 20171127
  Serious: No
  Sender: FDA-Public Use
  Company Number: US-PFIZER INC-2017358153

PATIENT
  Age: 75 Year
  Sex: Female
  Weight: 61 kg

DRUGS (7)
  1. WARFARIN [Concomitant]
     Active Substance: WARFARIN
     Indication: COAGULOPATHY
     Dosage: 2.5 MG, 1X/DAY
  2. WARFARIN [Concomitant]
     Active Substance: WARFARIN
     Indication: ATRIAL FIBRILLATION
  3. NEURONTIN [Suspect]
     Active Substance: GABAPENTIN
     Indication: NEURALGIA
     Dosage: UNK
     Dates: start: 2016
  4. CHLORTHALIDONE. [Concomitant]
     Active Substance: CHLORTHALIDONE
     Indication: BLOOD PRESSURE ABNORMAL
     Dosage: 25 MG, 1X/DAY
  5. DIGOXIN. [Concomitant]
     Active Substance: DIGOXIN
     Indication: ATRIAL FIBRILLATION
     Dosage: 0.125 MG, 1X/DAY
  6. POTASSIUM [Concomitant]
     Active Substance: POTASSIUM
     Indication: PROPHYLAXIS
     Dosage: 1 DF, 3X/DAY
  7. TOPROL XL [Concomitant]
     Active Substance: METOPROLOL SUCCINATE
     Indication: BLOOD PRESSURE ABNORMAL
     Dosage: 50 MG, 2X/DAY

REACTIONS (2)
  - Somnolence [Unknown]
  - Drug ineffective for unapproved indication [Unknown]
